FAERS Safety Report 24710181 (Version 1)
Quarter: 2024Q4

REPORT INFORMATION
  Report Type: Spontaneous
  Country: US (occurrence: US)
  Receive Date: 20241209
  Receipt Date: 20241209
  Transmission Date: 20250115
  Serious: No
  Sender: GLENMARK
  Company Number: US-GLENMARK PHARMACEUTICALS-2024GMK090735

PATIENT

DRUGS (2)
  1. OMEPRAZOLE [Suspect]
     Active Substance: OMEPRAZOLE
     Indication: Product used for unknown indication
     Dosage: UNK
     Route: 065
  2. IRON [Suspect]
     Active Substance: IRON
     Indication: Mineral supplementation
     Dosage: UNK (RED-BROWN IRON PILLS)
     Route: 065

REACTIONS (1)
  - Constipation [Unknown]
